FAERS Safety Report 5402152-3 (Version None)
Quarter: 2007Q3

REPORT INFORMATION
  Report Type: 
  Country: None (occurrence: None)
  Receive Date: 20070801
  Receipt Date: 20070723
  Transmission Date: 20080115
  Serious: Yes (Other)
  Sender: FDA-Public Use
  Company Number: CA-JNJFOC-20070602780

PATIENT
  Sex: Male
  Weight: 81.8 kg

DRUGS (6)
  1. REMICADE [Suspect]
     Route: 042
  2. REMICADE [Suspect]
     Indication: CROHN'S DISEASE
     Dosage: 5 INFUSIONS
     Route: 042
  3. BENADRYL [Concomitant]
     Indication: PREMEDICATION
  4. TYLENOL (CAPLET) [Concomitant]
     Indication: PREMEDICATION
  5. GRAVOL TAB [Concomitant]
     Indication: PREMEDICATION
  6. SOLU-CORTEF [Concomitant]
     Route: 042

REACTIONS (6)
  - ANXIETY [None]
  - FEELING ABNORMAL [None]
  - INFUSION RELATED REACTION [None]
  - OEDEMA PERIPHERAL [None]
  - PAIN [None]
  - PALPITATIONS [None]
